FAERS Safety Report 7583193-7 (Version None)
Quarter: 2011Q2

REPORT INFORMATION
  Report Type: 
  Country: None (occurrence: None)
  Receive Date: 20110630
  Receipt Date: 20110624
  Transmission Date: 20111010
  Serious: No
  Sender: FDA-Public Use
  Company Number: JP-B.I. PHARMACEUTICALS,INC./RIDGEFIELD-2011-BP-09821NB

PATIENT
  Sex: Female

DRUGS (9)
  1. MICARDIS [Concomitant]
     Indication: HYPERTENSION
     Dosage: 80 MG
     Route: 048
     Dates: start: 20100219
  2. MAGMITT [Concomitant]
     Indication: CONSTIPATION
     Dosage: 750 MG
     Route: 048
  3. PRADAXA [Suspect]
     Indication: ATRIAL FIBRILLATION
     Dosage: 220 MG
     Route: 048
     Dates: start: 20110324, end: 20110330
  4. BUP-4 [Concomitant]
     Indication: HYPERTONIC BLADDER
     Dosage: 10 MG
     Route: 048
     Dates: start: 20090727
  5. OMEPRAZOLE [Concomitant]
     Indication: REFLUX OESOPHAGITIS
     Dosage: 20 MG
     Route: 048
  6. ONEALFA [Concomitant]
     Indication: OSTEOPOROSIS
     Dosage: 1 MCG
     Route: 048
     Dates: start: 20100830
  7. DOXAZOSIN MESYLATE [Concomitant]
     Indication: HYPERTENSION
     Dosage: 1 MG
     Route: 048
     Dates: start: 20100921
  8. CONIEL [Concomitant]
     Indication: HYPERTENSION
     Dosage: 4 MG
     Route: 048
     Dates: start: 20110131
  9. FOSAMAC 5 MG [Concomitant]
     Indication: OSTEOPOROSIS
     Dosage: 5 MG
     Route: 048
     Dates: start: 20090416

REACTIONS (3)
  - PHARYNGITIS [None]
  - BLOOD CREATINE PHOSPHOKINASE INCREASED [None]
  - HAEMATURIA [None]
